FAERS Safety Report 10251480 (Version 7)
Quarter: 2017Q4

REPORT INFORMATION
  Report Type: Report from Study
  Country: CA (occurrence: CA)
  Receive Date: 20140623
  Receipt Date: 20171207
  Transmission Date: 20180320
  Serious: Yes (Hospitalization, Other)
  Sender: FDA-Public Use
  Company Number: CA-ROCHE-1348213

PATIENT
  Age: 67 Year
  Sex: Female

DRUGS (9)
  1. ARAVA [Suspect]
     Active Substance: LEFLUNOMIDE
     Indication: PRODUCT USED FOR UNKNOWN INDICATION
     Route: 065
     Dates: end: 201311
  2. SYNTHROID [Concomitant]
     Active Substance: LEVOTHYROXINE SODIUM
  3. ACTEMRA [Suspect]
     Active Substance: TOCILIZUMAB
     Indication: RHEUMATOID ARTHRITIS
     Route: 042
     Dates: start: 20130807, end: 20170315
  4. ACTEMRA [Suspect]
     Active Substance: TOCILIZUMAB
     Indication: RHEUMATOID ARTHRITIS
     Route: 058
     Dates: start: 20170418
  5. PREDNISONE. [Concomitant]
     Active Substance: PREDNISONE
  6. ACTONEL [Concomitant]
     Active Substance: RISEDRONATE SODIUM
  7. PROLIA [Concomitant]
     Active Substance: DENOSUMAB
  8. TYLENOL [Concomitant]
     Active Substance: ACETAMINOPHEN
  9. ADVIL [Concomitant]
     Active Substance: IBUPROFEN

REACTIONS (14)
  - Blood cholesterol increased [Unknown]
  - Cerebrovascular accident [Recovered/Resolved]
  - Feeling abnormal [Recovering/Resolving]
  - Injection site pain [Unknown]
  - Hand deformity [Unknown]
  - Cardiac hypertrophy [Unknown]
  - Thyroid function test abnormal [Unknown]
  - Joint swelling [Unknown]
  - Wrong technique in product usage process [Unknown]
  - White blood cell count decreased [Unknown]
  - Speech disorder [Recovering/Resolving]
  - Injection site haemorrhage [Unknown]
  - Tooth disorder [Unknown]
  - Injection site pain [Unknown]

NARRATIVE: CASE EVENT DATE: 201309
